FAERS Safety Report 8036191-3 (Version None)
Quarter: 2012Q1

REPORT INFORMATION
  Report Type: 
  Country: None (occurrence: None)
  Receive Date: 20120111
  Receipt Date: 20120103
  Transmission Date: 20120608
  Serious: Yes (Other)
  Sender: FDA-Public Use
  Company Number: PHHY2010MX54682

PATIENT
  Sex: Female

DRUGS (4)
  1. DIBOTIROXIDA [Concomitant]
     Dosage: UNK UKN, UNK
     Dates: start: 20110101
  2. ISOSORBIDE DINITRATE [Concomitant]
     Dosage: UNK UKN, UNK
     Dates: start: 20110101
  3. ENALAPRIL MALEATE [Concomitant]
     Dosage: ONCE A DAY  UNK
     Dates: start: 20111001
  4. ZOLEDRONOC ACID [Suspect]
     Indication: OSTEOPOROSIS
     Dosage: 5 MG/100 ML/ PER YEAR
     Route: 042
     Dates: start: 20081203

REACTIONS (7)
  - NECK PAIN [None]
  - MUSCULOSKELETAL PAIN [None]
  - LUMBAR VERTEBRAL FRACTURE [None]
  - BACK PAIN [None]
  - THYROID DISORDER [None]
  - ARTHRALGIA [None]
  - KNEE DEFORMITY [None]
